FAERS Safety Report 16672599 (Version 2)
Quarter: 2019Q3

REPORT INFORMATION
  Report Type: Spontaneous
  Country: RO (occurrence: RO)
  Receive Date: 20190806
  Receipt Date: 20190814
  Transmission Date: 20191004
  Serious: Yes (Death, Hospitalization)
  Sender: FDA-Public Use
  Company Number: RO-PFIZER INC-2019331856

PATIENT
  Age: 22 Year
  Sex: Female

DRUGS (4)
  1. AZATHIOPRINE. [Suspect]
     Active Substance: AZATHIOPRINE
     Dosage: UNK (AS A MONOTHERAPY)
     Route: 065
  2. CYCLOPHOSPHAMIDE. [Suspect]
     Active Substance: CYCLOPHOSPHAMIDE
     Indication: SYSTEMIC LUPUS ERYTHEMATOSUS
     Dosage: UNK (IN COMBINATION WITH AZATHIOPRINE)
     Route: 065
  3. METHYLPREDNISOLONE. [Suspect]
     Active Substance: METHYLPREDNISOLONE
     Indication: SYSTEMIC LUPUS ERYTHEMATOSUS
     Route: 065
  4. AZATHIOPRINE. [Suspect]
     Active Substance: AZATHIOPRINE
     Indication: SYSTEMIC LUPUS ERYTHEMATOSUS
     Dosage: UNK (IN COMBINATION WITH CYCLOPHOSPHAMIDE)
     Route: 065

REACTIONS (14)
  - Pulmonary sepsis [Fatal]
  - Rash [Unknown]
  - Skin disorder [Unknown]
  - Alveolitis [Fatal]
  - Polyserositis [Fatal]
  - Fatigue [Unknown]
  - Pyrexia [Unknown]
  - Systemic lupus erythematosus [Unknown]
  - Condition aggravated [Unknown]
  - Posterior reversible encephalopathy syndrome [Unknown]
  - Brain oedema [Fatal]
  - Generalised tonic-clonic seizure [Unknown]
  - Coagulopathy [Fatal]
  - Pneumonia [Fatal]
